FAERS Safety Report 9917255 (Version 1)
Quarter: 2014Q1

REPORT INFORMATION
  Report Type: Spontaneous
  Country: US (occurrence: US)
  Receive Date: 20140221
  Receipt Date: 20140221
  Transmission Date: 20141002
  Serious: Yes (Hospitalization)
  Sender: FDA-Public Use
  Company Number: US-GILEAD-2014-0094711

PATIENT
  Age: 87 Year
  Sex: Male

DRUGS (1)
  1. LETAIRIS [Suspect]
     Indication: PRODUCT USED FOR UNKNOWN INDICATION
     Dosage: 5 MG, UNK
     Route: 065
     Dates: start: 20111101

REACTIONS (4)
  - Abdominal distension [Recovered/Resolved]
  - Testicular swelling [Recovered/Resolved]
  - Abdominal distension [Recovered/Resolved]
  - Local swelling [Recovered/Resolved]
